FAERS Safety Report 4494086-6 (Version None)
Quarter: 2004Q4

REPORT INFORMATION
  Report Type: 
  Country: None (occurrence: None)
  Receive Date: 20041102
  Receipt Date: 20041018
  Transmission Date: 20050328
  Serious: Yes (Life-Threatening, Hospitalization)
  Sender: FDA-Public Use
  Company Number: 2004-0007554

PATIENT
  Age: 35 Year
  Sex: Male
  Weight: 76.5 kg

DRUGS (4)
  1. TENOFOVIR DISOPROXIL FUMARATE (TENOFOVIR DISOPROXYL FUMARATE) (TABLET) [Suspect]
     Indication: HIV INFECTION
     Dosage: 300 MG, 1 IN 1 D, ORAL
     Route: 048
     Dates: start: 20040512
  2. DIDANOSINE [Concomitant]
  3. EFAVIRENZ [Concomitant]
  4. FACTOR VIII (FACTOR VIII (ANTIHAEMOPHILIC FACTOR)) (1000 IU) [Concomitant]

REACTIONS (3)
  - CIRCULATORY COLLAPSE [None]
  - GASTROINTESTINAL HAEMORRHAGE [None]
  - MALLORY-WEISS SYNDROME [None]
